FAERS Safety Report 14029975 (Version 1)
Quarter: 2017Q4

REPORT INFORMATION
  Report Type: Spontaneous
  Country: US (occurrence: BR)
  Receive Date: 20171002
  Receipt Date: 20171002
  Transmission Date: 20180321
  Serious: Yes (Hospitalization, Other)
  Sender: FDA-Public Use
  Company Number: US-SUNOVION-2017SUN004236

PATIENT
  Sex: Female
  Weight: 42 kg

DRUGS (2)
  1. UTIBRON NEOHALER [Suspect]
     Active Substance: GLYCOPYRROLATE\INDACATEROL MALEATE
     Indication: PRODUCT USED FOR UNKNOWN INDICATION
     Dosage: 1 DF (110 MCG INDACTEROL/50 ?G GLYCOPYRRONIUM BROMIDE) , QD
     Route: 055
  2. FORASEQ [Suspect]
     Active Substance: BUDESONIDE\FORMOTEROL FUMARATE
     Indication: CHRONIC OBSTRUCTIVE PULMONARY DISEASE
     Route: 065

REACTIONS (6)
  - Infarction [Unknown]
  - Memory impairment [Unknown]
  - Psychotic disorder [Unknown]
  - Confusional state [Unknown]
  - Musculoskeletal discomfort [Unknown]
  - Panic disorder [Unknown]
